FAERS Safety Report 9348788 (Version 1)
Quarter: 2013Q2

REPORT INFORMATION
  Report Type: Spontaneous
  Country: US (occurrence: US)
  Receive Date: 20130614
  Receipt Date: 20130614
  Transmission Date: 20140414
  Serious: Yes (Other)
  Sender: FDA-Public Use
  Company Number: US-SANOFI-AVENTIS-2013SA059314

PATIENT
  Sex: Female

DRUGS (8)
  1. ZALTRAP [Suspect]
     Indication: PRODUCT USED FOR UNKNOWN INDICATION
     Route: 041
  2. ZALTRAP [Suspect]
     Indication: PRODUCT USED FOR UNKNOWN INDICATION
     Route: 041
  3. ZALTRAP [Suspect]
     Indication: PRODUCT USED FOR UNKNOWN INDICATION
     Route: 041
  4. ZALTRAP [Suspect]
     Indication: PRODUCT USED FOR UNKNOWN INDICATION
     Route: 041
  5. ZALTRAP [Suspect]
     Indication: PRODUCT USED FOR UNKNOWN INDICATION
     Route: 041
  6. ZALTRAP [Suspect]
     Indication: PRODUCT USED FOR UNKNOWN INDICATION
     Route: 041
  7. ZALTRAP [Suspect]
     Indication: PRODUCT USED FOR UNKNOWN INDICATION
     Route: 041
  8. ZALTRAP [Suspect]
     Indication: PRODUCT USED FOR UNKNOWN INDICATION
     Route: 041

REACTIONS (3)
  - Osteonecrosis of jaw [Unknown]
  - Mouth ulceration [Unknown]
  - Oral infection [Unknown]
